FAERS Safety Report 10082398 (Version 3)
Quarter: 2014Q2

REPORT INFORMATION
  Report Type: Spontaneous
  Country: IT (occurrence: IT)
  Receive Date: 20140416
  Receipt Date: 20140505
  Transmission Date: 20141212
  Serious: Yes (Hospitalization, Other)
  Sender: FDA-Public Use
  Company Number: IT-TEVA-473566ISR

PATIENT
  Age: 20 Year
  Sex: Male

DRUGS (5)
  1. DELORAZEPAM [Suspect]
     Indication: DRUG ABUSE
     Dosage: 300 MG TOTAL
     Route: 048
     Dates: start: 20140321, end: 20140321
  2. LORAZEPAM [Suspect]
     Indication: DRUG ABUSE
     Dosage: 25 MG TOTAL
     Route: 048
     Dates: start: 20140321, end: 20140321
  3. DEPAKIN CHRONO 300 MG COMPRESSE A RILASCIO PROLUNGATO [Suspect]
     Indication: DRUG ABUSE
     Dosage: 8 DF TOTAL
     Route: 048
     Dates: start: 20140321, end: 20140321
  4. DEPAKIN CHRONO 500 MG COMPRESSE A RILASCIO PROLUNGATO [Suspect]
     Indication: DRUG ABUSE
     Dosage: 12 DF TOTAL
     Route: 048
     Dates: start: 20140321, end: 20140321
  5. ZOLOFT 50 MG COMPRESSE RIVESTITE CON FILM [Suspect]
     Indication: DRUG ABUSE
     Dosage: 12 DF TOTAL
     Route: 048
     Dates: start: 20140321, end: 20140321

REACTIONS (5)
  - Coma [Recovered/Resolved]
  - Mydriasis [Recovered/Resolved]
  - Rhabdomyolysis [Unknown]
  - Suicide attempt [Unknown]
  - Drug abuse [Unknown]
